FAERS Safety Report 16672375 (Version 1)
Quarter: 2019Q3

REPORT INFORMATION
  Report Type: Spontaneous
  Country: FR (occurrence: FR)
  Receive Date: 20190806
  Receipt Date: 20190806
  Transmission Date: 20191004
  Serious: Yes (Hospitalization)
  Sender: FDA-Public Use
  Company Number: FR-ACCORD-150402

PATIENT
  Age: 39 Year
  Sex: Female

DRUGS (4)
  1. STILNOX [Suspect]
     Active Substance: ZOLPIDEM TARTRATE
     Dosage: UNKNOWN QUANTITY
     Route: 048
     Dates: start: 201907, end: 201907
  2. XANAX [Suspect]
     Active Substance: ALPRAZOLAM
     Dosage: UNKNOWN QUANTITY
     Route: 048
     Dates: start: 201907, end: 201907
  3. TOPIRAMATE. [Suspect]
     Active Substance: TOPIRAMATE
     Dosage: UNKNOWN QUANTITY
     Route: 048
     Dates: start: 201907, end: 201907
  4. PARACETAMOL [Suspect]
     Active Substance: ACETAMINOPHEN
     Dosage: UNKNOWN QUANTITY
     Route: 048
     Dates: start: 201907, end: 201907

REACTIONS (3)
  - Poisoning deliberate [Unknown]
  - Hepatocellular injury [Recovered/Resolved]
  - Seizure [Recovered/Resolved]

NARRATIVE: CASE EVENT DATE: 20190713
